FAERS Safety Report 6723846-3 (Version None)
Quarter: 2010Q2

REPORT INFORMATION
  Report Type: 
  Country: None (occurrence: None)
  Receive Date: 20100513
  Receipt Date: 20100305
  Transmission Date: 20101027
  Serious: Yes (Death, Hospitalization)
  Sender: FDA-Public Use
  Company Number: MX-ROCHE-666558

PATIENT
  Sex: Female
  Weight: 63.7 kg

DRUGS (7)
  1. MYCOPHENOLATE MOFETIL [Suspect]
     Indication: DRUG USE FOR UNKNOWN INDICATION
     Route: 065
     Dates: start: 20090414, end: 20091030
  2. BLINDED OCRELIZUMAB [Suspect]
     Indication: LUPUS NEPHRITIS
     Dosage: DOSE FORM: INFUSION.
     Route: 042
     Dates: start: 20090414
  3. CHLOROQUINE PHOSPHATE [Concomitant]
     Dates: start: 20080326
  4. ACETAMINOPHEN [Concomitant]
     Dosage: TDD REPORTED AS: PRN
     Dates: start: 20081210
  5. OMEPRAZOLE [Concomitant]
     Dosage: TDD REPORTED AS: PRN
     Dates: start: 20090414
  6. CALCIUM [Concomitant]
     Dosage: TDD REPORTED AS: 500
     Dates: start: 20090414
  7. PREDNISONE [Concomitant]
     Dates: start: 20090402, end: 20091105

REACTIONS (2)
  - NEUTROPENIA [None]
  - PNEUMONIA [None]
